FAERS Safety Report 17019871 (Version 1)
Quarter: 2019Q4

REPORT INFORMATION
  Report Type: Spontaneous
  Country: US (occurrence: US)
  Receive Date: 20191007
  Receipt Date: 20191007
  Transmission Date: 20200122
  Serious: Yes (Hospitalization)
  Sender: FDA-Public Use
  Company Number: None

PATIENT
  Age: 14 Year
  Sex: Male

DRUGS (1)
  1. BACTOCILL IN DEXTROSE 2GM/50ML BAXTER HEALTHCARE CORP [Suspect]
     Active Substance: OXACILLIN SODIUM
     Indication: ENDOCARDITIS
     Dosage: ?          OTHER STRENGTH:2GM/50ML;?
     Route: 042
     Dates: start: 20190916, end: 20190920

REACTIONS (2)
  - Alanine aminotransferase increased [None]
  - Aspartate aminotransferase increased [None]

NARRATIVE: CASE EVENT DATE: 20190920
